FAERS Safety Report 18214486 (Version 1)
Quarter: 2020Q3

REPORT INFORMATION
  Report Type: Spontaneous
  Country: BY (occurrence: BY)
  Receive Date: 20200831
  Receipt Date: 20200831
  Transmission Date: 20201103
  Serious: Yes (Other)
  Sender: FDA-Public Use
  Company Number: BY-JNJFOC-20200830007

PATIENT
  Age: 44 Year
  Sex: Male
  Weight: 67 kg

DRUGS (15)
  1. PYRIDOXINE [Concomitant]
     Active Substance: PYRIDOXINE
     Route: 048
     Dates: start: 20190604
  2. EMTRICITABINE [Concomitant]
     Active Substance: EMTRICITABINE
     Indication: HIV INFECTION
     Route: 048
     Dates: start: 20190604
  3. URSODIOL. [Concomitant]
     Active Substance: URSODIOL
     Route: 048
     Dates: start: 20190711, end: 20190718
  4. LINEZOLID. [Suspect]
     Active Substance: LINEZOLID
     Indication: TUBERCULOSIS
     Route: 048
     Dates: start: 20190604, end: 20190811
  5. TENOFOVIR [Concomitant]
     Active Substance: TENOFOVIR
     Indication: HIV INFECTION
     Route: 048
     Dates: start: 20190604
  6. NEVIRAPINE. [Concomitant]
     Active Substance: NEVIRAPINE
     Route: 048
     Dates: start: 20190620, end: 20190711
  7. CLOFAZIMINE [Suspect]
     Active Substance: CLOFAZIMINE
     Indication: TUBERCULOSIS
     Route: 048
     Dates: start: 20190604
  8. DELAMANID [Suspect]
     Active Substance: DELAMANID
     Indication: TUBERCULOSIS
     Route: 048
     Dates: start: 20190604
  9. SOFOVIR [Concomitant]
     Route: 048
     Dates: start: 20190503, end: 20190728
  10. DOLUTEGRAVIR [Concomitant]
     Active Substance: DOLUTEGRAVIR
     Indication: HIV INFECTION
     Route: 048
     Dates: start: 20200205
  11. COTRIMOXAZOLE [Concomitant]
     Active Substance: SULFAMETHOXAZOLE\TRIMETHOPRIM
     Indication: HIV INFECTION
     Route: 048
     Dates: start: 20190604, end: 20200526
  12. SIRTURO [Suspect]
     Active Substance: BEDAQUILINE FUMARATE
     Indication: TUBERCULOSIS
     Route: 048
     Dates: start: 20190604
  13. EFAVIRENZ. [Concomitant]
     Active Substance: EFAVIRENZ
     Route: 048
     Dates: start: 20190604, end: 20190620
  14. DACLATASVIR. [Concomitant]
     Active Substance: DACLATASVIR
     Route: 048
     Dates: start: 20190503, end: 20190728
  15. NEVIRAPINE. [Concomitant]
     Active Substance: NEVIRAPINE
     Route: 048
     Dates: start: 20190718, end: 20200205

REACTIONS (2)
  - Platelet count decreased [Not Recovered/Not Resolved]
  - Hepatitis [Recovered/Resolved]

NARRATIVE: CASE EVENT DATE: 20190710
